FAERS Safety Report 19633026 (Version 1)
Quarter: 2021Q3

REPORT INFORMATION
  Report Type: Spontaneous
  Country: US (occurrence: US)
  Receive Date: 20210730
  Receipt Date: 20210730
  Transmission Date: 20211014
  Serious: Yes (Other)
  Sender: FDA-Public Use
  Company Number: US-DRREDDYS-LIT/USA/21/0138298

PATIENT
  Sex: Male

DRUGS (8)
  1. FENTANYL CITRATE. [Suspect]
     Active Substance: FENTANYL CITRATE
     Indication: SEDATION
  2. FENTANYL CITRATE. [Suspect]
     Active Substance: FENTANYL CITRATE
     Indication: GENERAL ANAESTHESIA
  3. VECURONIUM [Suspect]
     Active Substance: VECURONIUM BROMIDE
     Indication: SEDATION
  4. VECURONIUM [Suspect]
     Active Substance: VECURONIUM BROMIDE
     Indication: GENERAL ANAESTHESIA
  5. PROPOFOL INJECTABLE EMULSION [Suspect]
     Active Substance: PROPOFOL
     Indication: GENERAL ANAESTHESIA
  6. CIS?ATRACURIUM [Suspect]
     Active Substance: CISATRACURIUM
     Indication: GENERAL ANAESTHESIA
  7. PROPOFOL INJECTABLE EMULSION [Suspect]
     Active Substance: PROPOFOL
     Indication: SEDATION
  8. CIS?ATRACURIUM [Suspect]
     Active Substance: CISATRACURIUM
     Indication: SEDATION

REACTIONS (2)
  - Cardio-respiratory distress [Unknown]
  - Foetal exposure during pregnancy [Unknown]
